FAERS Safety Report 5104132-4 (Version None)
Quarter: 2006Q3

REPORT INFORMATION
  Report Type: 
  Country: None (occurrence: None)
  Receive Date: 20060911
  Receipt Date: 20060922
  Transmission Date: 20061208
  Serious: Yes (Death, Life-Threatening, Hospitalization, Other)
  Sender: FDA-Public Use
  Company Number: 2006-07-1946

PATIENT
  Age: 58 Year
  Sex: Male

DRUGS (10)
  1. TEMODAL (TEMOZOLOMIDE) (TEMOZOLOMIDE) [Suspect]
     Indication: METASTASES TO CENTRAL NERVOUS SYSTEM
     Dosage: 130 MG; UNKNOWN; PO
     Route: 048
     Dates: start: 20060531, end: 20060630
  2. RADIATION THERAPY (THERAPEUTIC RADIOPHARMACEUTICALS) [Suspect]
     Indication: METASTASES TO CENTRAL NERVOUS SYSTEM
     Dosage: OTHER
     Dates: start: 20060531, end: 20060614
  3. FORTECORTIN (CON.) [Concomitant]
  4. HALDOL (CON.) [Concomitant]
  5. CHEMOTHERAPEUTICS NOS (CON.) [Concomitant]
  6. NEXIUM (CON.) [Concomitant]
  7. BACTRIM (CON.) [Concomitant]
  8. FRAGMIN (CON.) [Concomitant]
  9. CODEINE (CON.) [Concomitant]
  10. ZOLPIDEM (CON.) [Concomitant]

REACTIONS (8)
  - HAEMORRHAGE [None]
  - INFLAMMATION OF WOUND [None]
  - MALIGNANT NEOPLASM PROGRESSION [None]
  - METASTASES TO LIVER [None]
  - NON-SMALL CELL LUNG CANCER METASTATIC [None]
  - PNEUMONIA [None]
  - PROCEDURAL SITE REACTION [None]
  - THROMBOCYTOPENIA [None]
